FAERS Safety Report 16362720 (Version 1)
Quarter: 2019Q2

REPORT INFORMATION
  Report Type: Report from Study
  Country: IT (occurrence: IT)
  Receive Date: 20190528
  Receipt Date: 20190528
  Transmission Date: 20190711
  Serious: Yes (Hospitalization)
  Sender: FDA-Public Use
  Company Number: IT-MYLANLABS-2019M1049060

PATIENT
  Age: 39 Year
  Sex: Female

DRUGS (1)
  1. BRUFEN [Suspect]
     Active Substance: IBUPROFEN
     Indication: NECK PAIN
     Dosage: UNK
     Route: 048
     Dates: start: 20181010, end: 20181011

REACTIONS (3)
  - Asthma [Recovered/Resolved]
  - Generalised erythema [Recovered/Resolved]
  - Pruritus allergic [Recovered/Resolved]

NARRATIVE: CASE EVENT DATE: 20181011
